FAERS Safety Report 4370689-4 (Version None)
Quarter: 2004Q2

REPORT INFORMATION
  Report Type: 
  Country: None (occurrence: None)
  Receive Date: 20040604
  Receipt Date: 20040527
  Transmission Date: 20050107
  Serious: Yes (Other)
  Sender: FDA-Public Use
  Company Number: PHEH2004US05941

PATIENT
  Sex: Female

DRUGS (1)
  1. MIACALCIN [Suspect]
     Dates: start: 20000101

REACTIONS (3)
  - BASAL CELL CARCINOMA [None]
  - SKIN BLEEDING [None]
  - SKIN NEOPLASM EXCISION [None]
